FAERS Safety Report 8424001 (Version 2)
Quarter: 2013Q1

REPORT INFORMATION
  Report Type: Spontaneous
  Country: US (occurrence: US)
  Receive Date: 20120224
  Receipt Date: 20130227
  Transmission Date: 20140127
  Serious: Yes (Hospitalization)
  Sender: FDA-Public Use
  Company Number: US-BAYER-2012-016729

PATIENT
  Age: 44 Year
  Sex: Female

DRUGS (14)
  1. YAZ [Suspect]
     Indication: MENORRHAGIA
     Dosage: UNK
     Dates: start: 201105, end: 201110
  2. GIANVI [Suspect]
     Indication: MENORRHAGIA
     Dosage: UNK
     Dates: start: 201105, end: 201110
  3. YASMIN [Suspect]
  4. OCELLA [Suspect]
  5. SYMBICORT [Concomitant]
     Indication: ASTHMA
     Dosage: 1 PUFF/ IN AM
     Route: 055
  6. ASPIRIN [Concomitant]
     Indication: ANTICOAGULANT THERAPY
     Dosage: 81 MG IN AM, UNK
     Route: 048
  7. AMBIEN [Concomitant]
     Indication: INSOMNIA
     Dosage: 10 MG, HS
     Route: 048
  8. VALIUM [DIAZEPAM] [Concomitant]
     Indication: ANXIETY
     Dosage: 10 MG, BID
     Route: 048
  9. METFORMIN [Concomitant]
     Indication: DIABETES MELLITUS
     Dosage: 500 MG, BID
     Route: 048
  10. TOPAMAX [Concomitant]
     Indication: BIPOLAR DISORDER
     Dosage: 50 MG, 2XHS
     Route: 048
  11. NEURONTIN [Concomitant]
     Indication: DIABETIC NEUROPATHY
     Dosage: 300 MG, 3XTID
     Route: 048
  12. LISINOPRIL [Concomitant]
     Indication: HYPERTENSION
     Route: 048
  13. LANTUS [Concomitant]
     Indication: DIABETES MELLITUS
     Dosage: 10 UNITS/ AT 8 PM
     Route: 058
  14. NOVOLOG [Concomitant]
     Indication: DIABETES MELLITUS
     Dosage: 4 UNITS/ AT EACH MEAL
     Route: 058

REACTIONS (6)
  - Deep vein thrombosis [None]
  - Emotional distress [None]
  - Pain [None]
  - Injury [None]
  - Pain [None]
  - Off label use [None]
